FAERS Safety Report 6786862-1 (Version None)
Quarter: 2010Q2

REPORT INFORMATION
  Report Type: 
  Country: None (occurrence: None)
  Receive Date: 20100621
  Receipt Date: 20100615
  Transmission Date: 20101027
  Serious: Yes (Other)
  Sender: FDA-Public Use
  Company Number: DSA_43287_2010

PATIENT
  Age: 55 Year
  Sex: Male

DRUGS (3)
  1. ENALAPRIL MALEATE [Suspect]
     Indication: HYPERTENSION
     Dosage: DF ORAL
     Route: 048
  2. SIROLIMUS (RAPAMUNE) [Suspect]
     Indication: IMMUNOSUPPRESSION
     Dosage: DF ORAL
     Route: 048
  3. MYCOPHENOLATE MOFETIL [Concomitant]

REACTIONS (1)
  - ANGIOEDEMA [None]
